FAERS Safety Report 13973949 (Version 3)
Quarter: 2017Q3

REPORT INFORMATION
  Report Type: Spontaneous
  Country: BR (occurrence: BR)
  Receive Date: 20170915
  Receipt Date: 20170928
  Transmission Date: 20171128
  Serious: Yes (Other)
  Sender: FDA-Public Use
  Company Number: BR-PFIZER INC-2017394654

PATIENT
  Sex: Male

DRUGS (5)
  1. FRONTAL [Suspect]
     Active Substance: ALPRAZOLAM
     Indication: ALCOHOL ABUSE
     Dosage: 0.5 MG, UNK
  2. SOMALGIN CARDIO [Concomitant]
     Active Substance: ASPIRIN\DIHYDROXYALUMINUM AMINOACETATE ANHYDROUS\MAGNESIUM CARBONATE
     Dosage: UNK
  3. FRONTAL [Suspect]
     Active Substance: ALPRAZOLAM
     Indication: SLEEP DISORDER
     Dosage: 1.0 MG, UNK
  4. FRONTAL [Suspect]
     Active Substance: ALPRAZOLAM
     Dosage: 2 MG (2 TABLETS), DAILY (AT NIGHT)
  5. ATACAND [Concomitant]
     Active Substance: CANDESARTAN CILEXETIL
     Dosage: UNK

REACTIONS (2)
  - Drug ineffective for unapproved indication [Not Recovered/Not Resolved]
  - Glaucoma [Recovered/Resolved]
